FAERS Safety Report 5637910-3 (Version None)
Quarter: 2008Q1

REPORT INFORMATION
  Report Type: 
  Country: None (occurrence: None)
  Receive Date: 20080222
  Receipt Date: 20080222
  Transmission Date: 20080703
  Serious: Yes (Hospitalization)
  Sender: FDA-Public Use
  Company Number: None

PATIENT
  Age: 78 Year
  Weight: 86 kg

DRUGS (9)
  1. LISINOPRIL [Suspect]
     Indication: HYPERTENSION
     Dosage: 20MG DAILY PO; LONG TIME?
     Route: 048
  2. NASONEX [Concomitant]
  3. EPI-PEN INJECTION [Concomitant]
  4. VYTORIN [Concomitant]
  5. ARICEPT [Concomitant]
  6. LORAZEPAM [Concomitant]
  7. LISINOPRIL [Concomitant]
  8. EFFEXOR [Concomitant]
  9. DETROL LA [Concomitant]

REACTIONS (3)
  - OEDEMA MOUTH [None]
  - RESPIRATORY DISORDER [None]
  - SWOLLEN TONGUE [None]
